FAERS Safety Report 14457113 (Version 1)
Quarter: 2018Q1

REPORT INFORMATION
  Report Type: Spontaneous
  Country: US (occurrence: US)
  Receive Date: 20180129
  Receipt Date: 20180129
  Transmission Date: 20180509
  Serious: Yes (Hospitalization)
  Sender: FDA-Public Use
  Company Number: None

PATIENT
  Age: 32 Year
  Sex: Female
  Weight: 52.16 kg

DRUGS (1)
  1. MIRENA [Suspect]
     Active Substance: LEVONORGESTREL

REACTIONS (8)
  - Menstrual disorder [None]
  - Caesarean section [None]
  - Cyst [None]
  - Abortion threatened [None]
  - Menstruation irregular [None]
  - Haemorrhage [None]
  - Fatigue [None]
  - Benign hydatidiform mole [None]

NARRATIVE: CASE EVENT DATE: 20180126
